FAERS Safety Report 4606743-9 (Version None)
Quarter: 2005Q1

REPORT INFORMATION
  Report Type: 
  Country: None (occurrence: None)
  Receive Date: 20050309
  Receipt Date: 20050218
  Transmission Date: 20050727
  Serious: Yes (Other)
  Sender: FDA-Public Use
  Company Number: USA050291223

PATIENT
  Age: 69 Year
  Sex: Female
  Weight: 59 kg

DRUGS (1)
  1. HUMALOG [Suspect]
     Indication: DIABETES MELLITUS
     Dosage: 40 U/2DAY
     Dates: start: 19850101

REACTIONS (4)
  - BREAST CANCER FEMALE [None]
  - BREAST MASS [None]
  - DEMENTIA [None]
  - NEUROPATHIC ARTHROPATHY [None]
